FAERS Safety Report 18439643 (Version 1)
Quarter: 2020Q4

REPORT INFORMATION
  Report Type: Report from Study
  Country: EG (occurrence: EG)
  Receive Date: 20201029
  Receipt Date: 20201029
  Transmission Date: 20210114
  Serious: Yes (Other)
  Sender: FDA-Public Use
  Company Number: NVSC2020EG285111

PATIENT
  Age: 66 Year
  Sex: Male

DRUGS (3)
  1. GLIVEC [Suspect]
     Active Substance: IMATINIB MESYLATE
     Dosage: 2 DF, QD (100 MG) (STARTED ON 3 OR 4 YAERS)
     Route: 065
  2. TASIGNA [Suspect]
     Active Substance: NILOTINIB
     Indication: CHRONIC MYELOID LEUKAEMIA
     Dosage: 4 DF, QD (200 MG) (STARTED ON 2 OR 3 YEARS AGO)
     Route: 065
  3. GLIVEC [Suspect]
     Active Substance: IMATINIB MESYLATE
     Indication: CHRONIC MYELOID LEUKAEMIA
     Dosage: 4 DF, QD  (DISCONTINUED ON 2 OR 3 YAERS AGO)
     Route: 065
     Dates: start: 2009

REACTIONS (6)
  - Diabetes mellitus [Recovering/Resolving]
  - Visual impairment [Recovering/Resolving]
  - Cardiac hypertrophy [Recovering/Resolving]
  - Polymerase chain reaction positive [Recovered/Resolved]
  - Hypertension [Recovering/Resolving]
  - Pain [Unknown]

NARRATIVE: CASE EVENT DATE: 2016
